FAERS Safety Report 7179582-5 (Version None)
Quarter: 2010Q4

REPORT INFORMATION
  Report Type: 
  Country: None (occurrence: None)
  Receive Date: 20101221
  Receipt Date: 20101209
  Transmission Date: 20110411
  Serious: Yes (Other)
  Sender: FDA-Public Use
  Company Number: PHHY2010AR84188

PATIENT
  Age: 28 Year
  Sex: Female

DRUGS (7)
  1. CLOZAPINE [Suspect]
     Indication: SCHIZOPHRENIA
     Dosage: 350 MG/DAILY
  2. CLOZAPINE [Suspect]
     Indication: PSYCHOTIC DISORDER
  3. TEGRETOL [Concomitant]
  4. RIVOTRIL [Concomitant]
  5. AMPLIACTIL [Concomitant]
  6. NOZINAN                                 /NET/ [Concomitant]
  7. ACIFOL [Concomitant]

REACTIONS (5)
  - BACTERIAL INFECTION [None]
  - INFECTION [None]
  - LIP DISCOLOURATION [None]
  - OEDEMA PERIPHERAL [None]
  - WHITE BLOOD CELL COUNT DECREASED [None]
